FAERS Safety Report 23307730 (Version 1)
Quarter: 2023Q4

REPORT INFORMATION
  Report Type: Spontaneous
  Country: BR (occurrence: BR)
  Receive Date: 20231218
  Receipt Date: 20231218
  Transmission Date: 20240109
  Serious: Yes (Other)
  Sender: FDA-Public Use
  Company Number: BR-PFIZER INC-PV202300198988

PATIENT
  Age: 80 Year
  Sex: Male
  Weight: 66.6 kg

DRUGS (1)
  1. SUTENT [Suspect]
     Active Substance: SUNITINIB MALATE
     Dosage: 50 MG, DAILY AT NIGHT
     Route: 048
     Dates: start: 20230817

REACTIONS (8)
  - Cystitis [Recovered/Resolved]
  - Abdominal discomfort [Recovered/Resolved]
  - Abdominal pain upper [Unknown]
  - Hepatic pain [Unknown]
  - Limb discomfort [Unknown]
  - Erythema [Recovered/Resolved]
  - Decreased appetite [Unknown]
  - Abdominal distension [Recovered/Resolved]
